FAERS Safety Report 19076937 (Version 1)
Quarter: 2021Q1

REPORT INFORMATION
  Report Type: Spontaneous
  Country: US (occurrence: US)
  Receive Date: 20210330
  Receipt Date: 20210330
  Transmission Date: 20210420
  Serious: Yes (Hospitalization)
  Sender: FDA-Public Use
  Company Number: None

PATIENT
  Age: 68 Year
  Sex: Male

DRUGS (1)
  1. MITIGARE [Suspect]
     Active Substance: COLCHICINE
     Dates: start: 20210228, end: 20210306

REACTIONS (3)
  - Nausea [None]
  - Diarrhoea [None]
  - Chest pain [None]

NARRATIVE: CASE EVENT DATE: 20210306
